FAERS Safety Report 8303449-X (Version None)
Quarter: 2012Q2

REPORT INFORMATION
  Report Type: 
  Country: None (occurrence: None)
  Receive Date: 20120423
  Receipt Date: 20120417
  Transmission Date: 20120825
  Serious: No
  Sender: FDA-Public Use
  Company Number: US-PFIZER INC-2012096365

PATIENT
  Sex: Male
  Weight: 90.7 kg

DRUGS (5)
  1. METFORMIN [Concomitant]
     Indication: BLOOD GLUCOSE INCREASED
     Dosage: 500 MG, DAILY
  2. OMEPRAZOLE [Concomitant]
     Indication: DYSPEPSIA
     Dosage: 40 MG, DAILY
  3. METOPROLOL [Concomitant]
     Dosage: 25 MG, DAILY
  4. DETROL LA [Suspect]
     Indication: POLLAKIURIA
     Dosage: 4 MG, DAILY
     Route: 048
  5. OMEPRAZOLE [Concomitant]
     Indication: HYPERCHLORHYDRIA

REACTIONS (2)
  - NOCTURIA [None]
  - DRUG INEFFECTIVE [None]
